FAERS Safety Report 8854825 (Version 1)
Quarter: 2012Q4

REPORT INFORMATION
  Report Type: 
  Country: CA (occurrence: CA)
  Receive Date: 20121023
  Receipt Date: 20121023
  Transmission Date: 20130627
  Serious: Yes (Other)
  Sender: FDA-Public Use
  Company Number: PHHY2012CA094573

PATIENT
  Sex: Male

DRUGS (1)
  1. SANDOSTATIN [Suspect]
     Indication: ANGIODYSPLASIA
     Dosage: 10 mg, QMO
     Route: 030
     Dates: start: 20101221

REACTIONS (2)
  - Leukaemia [Unknown]
  - Second primary malignancy [Unknown]
